FAERS Safety Report 15254412 (Version 1)
Quarter: 2018Q3

REPORT INFORMATION
  Report Type: Spontaneous
  Country: FR (occurrence: FR)
  Receive Date: 20180808
  Receipt Date: 20180808
  Transmission Date: 20181010
  Serious: Yes (Hospitalization, Other)
  Sender: FDA-Public Use
  Company Number: FR-AUROBINDO-AUR-APL-2018-039223

PATIENT
  Age: 65 Year
  Sex: Male
  Weight: 88 kg

DRUGS (8)
  1. DUPHALAC [Suspect]
     Active Substance: LACTULOSE
     Indication: CONSTIPATION
     Dosage: UNK
     Route: 048
     Dates: start: 20180504, end: 201807
  2. THALIDOMIDE [Suspect]
     Active Substance: THALIDOMIDE
     Indication: PLASMA CELL MYELOMA
     Dosage: 100 MILLIGRAM, 3 SEMAINES / MOIS
     Route: 048
     Dates: start: 20180504, end: 201807
  3. PRIMPERAN [Suspect]
     Active Substance: METOCLOPRAMIDE HYDROCHLORIDE
     Indication: PRODUCT USED FOR UNKNOWN INDICATION
     Dosage: UNK, SI BESOIN
     Route: 065
     Dates: start: 20180504, end: 201807
  4. VALACICLOVIR [Suspect]
     Active Substance: VALACYCLOVIR HYDROCHLORIDE
     Indication: PRODUCT USED FOR UNKNOWN INDICATION
     Dosage: 1000 MILLIGRAM, DAILY
     Route: 048
     Dates: start: 20180504, end: 201807
  5. AMOXICILLINE                       /00249601/ [Suspect]
     Active Substance: AMOXICILLIN
     Indication: PRODUCT USED FOR UNKNOWN INDICATION
     Route: 048
     Dates: start: 20180504, end: 201807
  6. NEOFORDEX [Suspect]
     Active Substance: DEXAMETHASONE ACETATE
     Indication: PLASMA CELL MYELOMA
     Dosage: 40 MILLIGRAM
     Route: 048
     Dates: start: 20180504, end: 201807
  7. BACTRIM [Suspect]
     Active Substance: SULFAMETHOXAZOLE\TRIMETHOPRIM
     Indication: PRODUCT USED FOR UNKNOWN INDICATION
     Dosage: 3 DOSAGE FORM, EVERY WEEK
     Route: 048
     Dates: start: 20180504, end: 201807
  8. VELCADE [Suspect]
     Active Substance: BORTEZOMIB
     Indication: PLASMA CELL MYELOMA
     Dosage: UNK
     Route: 065
     Dates: start: 20180503, end: 201807

REACTIONS (6)
  - Aphthous ulcer [Recovering/Resolving]
  - Genital erythema [Recovering/Resolving]
  - Cheilitis [Recovering/Resolving]
  - Rash maculo-papular [Recovering/Resolving]
  - Thrombocytopenia [Recovering/Resolving]
  - Conjunctival irritation [Recovering/Resolving]

NARRATIVE: CASE EVENT DATE: 20180627
